FAERS Safety Report 16778207 (Version 2)
Quarter: 2019Q3

REPORT INFORMATION
  Report Type: Spontaneous
  Country: US (occurrence: US)
  Receive Date: 20190905
  Receipt Date: 20190924
  Transmission Date: 20191005
  Serious: Yes (Hospitalization, Other)
  Sender: FDA-Public Use
  Company Number: US-ASTRAZENECA-2019SF25700

PATIENT
  Sex: Female

DRUGS (9)
  1. LYNPARZA [Suspect]
     Active Substance: OLAPARIB
     Indication: OVARIAN CANCER
     Route: 048
     Dates: start: 20190426
  2. CALCIUM CARBONATE. [Concomitant]
     Active Substance: CALCIUM CARBONATE
  3. TYLENOL [Concomitant]
     Active Substance: ACETAMINOPHEN
  4. LYNPARZA [Suspect]
     Active Substance: OLAPARIB
     Indication: BREAST CANCER FEMALE
     Route: 048
     Dates: start: 20190426
  5. LYNPARZA [Suspect]
     Active Substance: OLAPARIB
     Indication: OVARIAN CANCER
     Route: 048
     Dates: start: 20190426
  6. LYNPARZA [Suspect]
     Active Substance: OLAPARIB
     Indication: OVARIAN CANCER
     Route: 048
     Dates: start: 2019
  7. MULTIVITAMINS [Concomitant]
     Active Substance: VITAMINS
  8. LYNPARZA [Suspect]
     Active Substance: OLAPARIB
     Indication: BREAST CANCER FEMALE
     Route: 048
     Dates: start: 20190426
  9. LYNPARZA [Suspect]
     Active Substance: OLAPARIB
     Indication: BREAST CANCER FEMALE
     Route: 048
     Dates: start: 2019

REACTIONS (3)
  - Acute hepatic failure [Recovered/Resolved]
  - Liver function test increased [Recovered/Resolved]
  - Jaundice [Recovered/Resolved]
